FAERS Safety Report 14557591 (Version 1)
Quarter: 2018Q1

REPORT INFORMATION
  Report Type: Spontaneous
  Country: US (occurrence: US)
  Receive Date: 20180221
  Receipt Date: 20180221
  Transmission Date: 20180509
  Serious: No
  Sender: FDA-Public Use
  Company Number: US-IPSEN BIOPHARMACEUTICALS, INC.-2017-09226

PATIENT
  Age: 33 Year
  Sex: Female

DRUGS (2)
  1. DYSPORT [Suspect]
     Active Substance: ABOBOTULINUMTOXINA
     Indication: SKIN WRINKLING
  2. DYSPORT [Suspect]
     Active Substance: ABOBOTULINUMTOXINA
     Indication: SKIN WRINKLING
     Dosage: 27 UNITS
     Route: 065
     Dates: start: 20170809, end: 20170809

REACTIONS (6)
  - Muscle tightness [Recovered/Resolved]
  - Presyncope [Recovered/Resolved]
  - Throat tightness [Recovered/Resolved]
  - Product preparation error [Unknown]
  - Chest pain [Recovered/Resolved]
  - Gastrooesophageal reflux disease [Not Recovered/Not Resolved]

NARRATIVE: CASE EVENT DATE: 20170809
